FAERS Safety Report 17030668 (Version 1)
Quarter: 2019Q4

REPORT INFORMATION
  Report Type: Report from Study
  Country: DE (occurrence: DE)
  Receive Date: 20191114
  Receipt Date: 20191114
  Transmission Date: 20200122
  Serious: Yes (Hospitalization, Other)
  Sender: FDA-Public Use
  Company Number: DE-TEVA-2019-DE-1135498

PATIENT
  Age: 39 Year
  Sex: Female

DRUGS (1)
  1. COPAXONE [Suspect]
     Active Substance: GLATIRAMER ACETATE
     Indication: MULTIPLE SCLEROSIS

REACTIONS (5)
  - Multiple sclerosis relapse [Unknown]
  - Speech disorder [Unknown]
  - Palatal disorder [Unknown]
  - Brain stem syndrome [Unknown]
  - Tongue disorder [Unknown]

NARRATIVE: CASE EVENT DATE: 201901
